FAERS Safety Report 6327936-9 (Version None)
Quarter: 2009Q3

REPORT INFORMATION
  Report Type: 
  Country: None (occurrence: None)
  Receive Date: 20090824
  Receipt Date: 20090812
  Transmission Date: 20100115
  Serious: Yes (Other)
  Sender: FDA-Public Use
  Company Number: 2009AP003264

PATIENT

DRUGS (5)
  1. LAMOTRIGINE [Suspect]
     Dosage: 200 MG; QD TRPL
     Route: 064
  2. LEVETIRACETAM [Suspect]
     Dosage: 1000 MG TRPL, QD
     Route: 064
  3. VALPROIC ACID [Suspect]
     Dosage: 1200 MG; QD TRPL
     Route: 064
  4. CLOBAZAM (CLOBAZAM) [Suspect]
     Dosage: 10 MG; QD TRPL
     Route: 064
  5. FOLIC ACID [Concomitant]

REACTIONS (4)
  - ANORECTAL DISORDER [None]
  - DRUG EXPOSURE DURING PREGNANCY [None]
  - NEURAL TUBE DEFECT [None]
  - SPINA BIFIDA [None]
